FAERS Safety Report 8887424 (Version 1)
Quarter: 2012Q4

REPORT INFORMATION
  Report Type: Spontaneous
  Country: US (occurrence: None)
  Receive Date: 20121101
  Receipt Date: 20121101
  Transmission Date: 20130627
  Serious: Yes (Hospitalization)
  Sender: FDA-Public Use
  Company Number: None

PATIENT
  Age: 76 Year
  Sex: Female
  Weight: 76.2 kg

DRUGS (14)
  1. DILTIAZEM CD [Suspect]
     Dosage: re cont
     Route: 048
  2. LYRICA [Concomitant]
  3. TYLENOL [Concomitant]
  4. HYDROCODONE [Concomitant]
  5. XANAX [Concomitant]
  6. MAALOX [Concomitant]
  7. ASA [Concomitant]
  8. CA VIT D [Concomitant]
  9. B12 [Concomitant]
  10. LEXAPRO [Concomitant]
  11. LASIX [Concomitant]
  12. HYDROXYCHLOROQUINE [Concomitant]
  13. LISINOPRIL [Concomitant]
  14. MVI [Concomitant]

REACTIONS (2)
  - Asthenia [None]
  - Sinus bradycardia [None]
